FAERS Safety Report 9001049 (Version 1)
Quarter: 2012Q4

REPORT INFORMATION
  Report Type: Spontaneous
  Country: US (occurrence: None)
  Receive Date: 20121226
  Receipt Date: 20121226
  Transmission Date: 20130627
  Serious: Yes (Hospitalization)
  Sender: FDA-Public Use
  Company Number: B0854309A

PATIENT
  Age: 76 Year
  Sex: Male

DRUGS (5)
  1. PAZOPANIB [Suspect]
     Indication: RENAL CELL CARCINOMA
  2. SORAFENIB [Concomitant]
  3. SUNITINIB [Concomitant]
  4. INTERFERON [Concomitant]
  5. EVEROLIMUS [Concomitant]

REACTIONS (6)
  - Posterior reversible encephalopathy syndrome [None]
  - Balint^s syndrome [None]
  - Hypertensive crisis [None]
  - Renal failure acute [None]
  - Troponin increased [None]
  - Microangiopathic haemolytic anaemia [None]
